FAERS Safety Report 10706232 (Version 1)
Quarter: 2015Q1

REPORT INFORMATION
  Report Type: Spontaneous
  Country: US (occurrence: US)
  Receive Date: 20150113
  Receipt Date: 20150113
  Transmission Date: 20150721
  Serious: Yes (Hospitalization, Other)
  Sender: FDA-Public Use
  Company Number: US-AUROBINDO-AUR-APL-2015-00040

PATIENT
  Age: 39 Year
  Sex: Male

DRUGS (4)
  1. QUETIAPINE [Suspect]
     Active Substance: QUETIAPINE
     Indication: MANIA
     Dosage: 150 MG, AT NIGHTLY
     Route: 065
  2. LORAZEPAM. [Suspect]
     Active Substance: LORAZEPAM
     Indication: PRODUCT USED FOR UNKNOWN INDICATION
     Dosage: 0.5 MG, UNK
     Route: 065
  3. QUETIAPINE [Interacting]
     Active Substance: QUETIAPINE
     Indication: BIPOLAR I DISORDER
     Dosage: 800 MG, AT NIGTHLY
     Route: 065
  4. VALPROIC ACID. [Interacting]
     Active Substance: VALPROIC ACID
     Indication: BIPOLAR I DISORDER
     Dosage: 2500 MG, AT NIGHTLY
     Route: 065

REACTIONS (10)
  - Acute prerenal failure [Recovered/Resolved]
  - Hyperglycaemia [Recovered/Resolved]
  - Hyperlipidaemia [Recovered/Resolved]
  - Blood triglycerides increased [Recovered/Resolved]
  - Drug interaction [Recovered/Resolved]
  - Electrolyte imbalance [Recovered/Resolved]
  - Weight increased [Recovered/Resolved]
  - High density lipoprotein abnormal [Recovered/Resolved]
  - Hypoxia [Recovered/Resolved]
  - Hypercapnia [Recovered/Resolved]
